FAERS Safety Report 8007848-5 (Version None)
Quarter: 2011Q4

REPORT INFORMATION
  Report Type: 
  Country: None (occurrence: None)
  Receive Date: 20111227
  Receipt Date: 20111214
  Transmission Date: 20120403
  Serious: Yes (Death)
  Sender: FDA-Public Use
  Company Number: FR-SANOFI-AVENTIS-2011SA081777

PATIENT
  Age: 6 Day
  Sex: Male
  Weight: 1.27 kg

DRUGS (2)
  1. CLAFORAN [Suspect]
     Route: 065
     Dates: start: 20111031, end: 20111101
  2. IBUPROFEN [Suspect]
     Route: 042
     Dates: start: 20111031, end: 20111031

REACTIONS (2)
  - SMALL INTESTINAL PERFORATION [None]
  - INTRAVENTRICULAR HAEMORRHAGE NEONATAL [None]
